FAERS Safety Report 9422754 (Version 1)
Quarter: 2013Q3

REPORT INFORMATION
  Report Type: Spontaneous
  Country: US (occurrence: US)
  Receive Date: 20130726
  Receipt Date: 20130726
  Transmission Date: 20140515
  Serious: No
  Sender: FDA-Public Use
  Company Number: US-PFIZER INC-2013216626

PATIENT
  Age: 21 Year
  Sex: Female

DRUGS (3)
  1. AZITHROMYCIN [Suspect]
     Indication: BRONCHITIS
     Dosage: 250 MG, 2X/DAY
     Route: 048
     Dates: start: 20130723
  2. SYNTHROID [Concomitant]
     Indication: THYROID DISORDER
     Dosage: UNK
  3. PROAIR HFA [Concomitant]
     Indication: ASTHMA
     Dosage: UNK

REACTIONS (2)
  - Abdominal pain upper [Unknown]
  - Nausea [Unknown]
